FAERS Safety Report 19505681 (Version 1)
Quarter: 2021Q3

REPORT INFORMATION
  Report Type: Spontaneous
  Country: US (occurrence: US)
  Receive Date: 20210706
  Receipt Date: 20210706
  Transmission Date: 20211014
  Serious: No
  Sender: FDA-Public Use
  Company Number: None

PATIENT
  Age: 66 Year
  Sex: Male
  Weight: 102.06 kg

DRUGS (15)
  1. SILDENAFIL. [Concomitant]
     Active Substance: SILDENAFIL
  2. LORATIDINE [Concomitant]
     Active Substance: LORATADINE
  3. SOTALOL. [Concomitant]
     Active Substance: SOTALOL
  4. ANDROGEL [Concomitant]
     Active Substance: TESTOSTERONE
  5. CENTRUM SILVER [Concomitant]
     Active Substance: MINERALS\VITAMINS
  6. LOSARTAN. [Concomitant]
     Active Substance: LOSARTAN
  7. DICLOFENAC [Concomitant]
     Active Substance: DICLOFENAC
  8. AMLODIPINE [Concomitant]
     Active Substance: AMLODIPINE BESYLATE
  9. FLONASE [Concomitant]
     Active Substance: FLUTICASONE PROPIONATE
  10. ANDROGEL [Suspect]
     Active Substance: TESTOSTERONE
     Indication: LATE ONSET HYPOGONADISM SYNDROME
     Dosage: ?          QUANTITY:1 DF DOSAGE FORM; 1 PUMP (20.25 MG)?
     Route: 061
     Dates: start: 20210624
  11. ROSUVASTATIN. [Concomitant]
     Active Substance: ROSUVASTATIN
  12. FENOFIBRATE. [Concomitant]
     Active Substance: FENOFIBRATE
  13. ARNUITY ELLIPTA [Concomitant]
     Active Substance: FLUTICASONE FUROATE
  14. MONTELUKAST [Concomitant]
     Active Substance: MONTELUKAST SODIUM
  15. AZELASTINE. [Concomitant]
     Active Substance: AZELASTINE HYDROCHLORIDE

REACTIONS (3)
  - Product dose omission in error [None]
  - Anxiety [None]
  - Product communication issue [None]

NARRATIVE: CASE EVENT DATE: 20210624
